FAERS Safety Report 11559337 (Version 1)
Quarter: 2015Q3

REPORT INFORMATION
  Report Type: Spontaneous
  Country: US (occurrence: US)
  Receive Date: 20150916
  Receipt Date: 20150916
  Transmission Date: 20151125
  Serious: No
  Sender: FDA-Public Use
  Company Number: US-ELI_LILLY_AND_COMPANY-US200808002214

PATIENT
  Age: 74 Year
  Sex: Female
  Weight: 39.46 kg

DRUGS (6)
  1. FORTEO [Suspect]
     Active Substance: TERIPARATIDE
     Indication: OSTEOPOROSIS
     Dosage: 20 UG, DAILY (1/D)
     Dates: start: 200704, end: 20080811
  2. ATIVAN [Concomitant]
     Active Substance: LORAZEPAM
  3. LEVOXYL [Concomitant]
     Active Substance: LEVOTHYROXINE SODIUM
     Dosage: 25 D/F, UNK
  4. VITAMIN D [Concomitant]
     Active Substance: CHOLECALCIFEROL
     Dosage: 1000 U, DAILY (1/D)
  5. CITRACAL [Concomitant]
     Active Substance: CALCIUM CITRATE
  6. CALCIUM [Concomitant]
     Active Substance: CALCIUM
     Dosage: 600 D/F, 2/D

REACTIONS (3)
  - Bone scan abnormal [Recovered/Resolved]
  - Spinal fracture [Unknown]
  - Blood alkaline phosphatase increased [Unknown]

NARRATIVE: CASE EVENT DATE: 20080728
